FAERS Safety Report 5719419-1 (Version None)
Quarter: 2008Q2

REPORT INFORMATION
  Report Type: 
  Country: None (occurrence: None)
  Receive Date: 20080428
  Receipt Date: 20080418
  Transmission Date: 20081010
  Serious: Yes (Other)
  Sender: FDA-Public Use
  Company Number: PHHY2008IE05953

PATIENT
  Sex: Male

DRUGS (2)
  1. DIOVAN [Suspect]
  2. ANTIHYPERTENSIVES [Concomitant]

REACTIONS (2)
  - MUSCLE SPASMS [None]
  - RAYNAUD'S PHENOMENON [None]
